FAERS Safety Report 4365115-5 (Version None)
Quarter: 2004Q2

REPORT INFORMATION
  Report Type: 
  Country: None (occurrence: None)
  Receive Date: 20040521
  Receipt Date: 20040506
  Transmission Date: 20050107
  Serious: Yes (Hospitalization)
  Sender: FDA-Public Use
  Company Number: STA-AE-04-MTX-187

PATIENT
  Age: 33 Year
  Sex: Female

DRUGS (10)
  1. METHOTREXATE [Suspect]
     Indication: RHEUMATOID ARTHRITIS
  2. ENBREL [Suspect]
     Indication: RHEUMATOID ARTHRITIS
     Dosage: 25 MG 2X PER 1 WK, SC
     Route: 058
     Dates: start: 20031006, end: 20040401
  3. DEFLAZACORT (DEFLAZACORT) [Suspect]
     Indication: RHEUMATOID ARTHRITIS
     Dosage: 6 MG 1X PER 1 DAY, ORAL
     Route: 048
  4. DOLOTREN (DICLOFENAC SODIUM) [Concomitant]
  5. ISONIAZID [Concomitant]
  6. DEXNON (LEVOTHYROXINE SODIUM) [Concomitant]
  7. ACETAMINOPHEN [Concomitant]
  8. FOLIC ACID [Concomitant]
  9. CARISOPRODOL [Concomitant]
  10. OMEPRAZOLE [Concomitant]

REACTIONS (5)
  - ASTHENIA [None]
  - INFECTION IN AN IMMUNOCOMPROMISED HOST [None]
  - NORMOCHROMIC NORMOCYTIC ANAEMIA [None]
  - PRODUCTIVE COUGH [None]
  - VARICELLA [None]
